FAERS Safety Report 5231923-1 (Version None)
Quarter: 2007Q1

REPORT INFORMATION
  Report Type: 
  Country: None (occurrence: None)
  Receive Date: 20070206
  Receipt Date: 20070125
  Transmission Date: 20070707
  Serious: Yes (Other)
  Sender: FDA-Public Use
  Company Number: US-PFIZER INC-2007007227

PATIENT
  Sex: Male

DRUGS (23)
  1. DEPO-PROVERA [Suspect]
     Indication: SEXUAL OFFENCE
     Route: 030
     Dates: start: 19970101, end: 19970101
  2. DEPO-PROVERA [Suspect]
     Dosage: FREQ:400 MG EVERY 3 MONTHS
     Route: 030
     Dates: start: 20060301, end: 20060301
  3. LIPITOR [Suspect]
     Indication: BLOOD CHOLESTEROL INCREASED
  4. LITHIUM CARBONATE [Suspect]
     Indication: DEPRESSION
     Dates: start: 20050826, end: 20061121
  5. LITHIUM CARBONATE [Suspect]
     Indication: BIPOLAR DISORDER
  6. LITHIUM CARBONATE [Suspect]
     Indication: MOOD SWINGS
  7. METFORMIN HCL [Concomitant]
     Indication: DIABETES MELLITUS
  8. WELLBUTRIN [Concomitant]
  9. ASPIRIN [Concomitant]
  10. GLIPIZIDE [Concomitant]
  11. LEXAPRO [Concomitant]
  12. CARTIA XT [Concomitant]
     Indication: HYPERTENSION
  13. ACIPHEX [Concomitant]
  14. AVANDIA [Concomitant]
  15. LAMICTAL [Concomitant]
  16. SEROQUEL [Concomitant]
  17. CLONAZEPAM [Concomitant]
  18. LISINOPRIL [Concomitant]
  19. REGLAN [Concomitant]
  20. PRAVACHOL [Concomitant]
  21. ADVAIR DISKUS 100/50 [Concomitant]
     Indication: ASTHMA
  22. SINGULAIR ^DIECKMANN^ [Concomitant]
     Indication: ASTHMA
  23. NASONEX [Concomitant]

REACTIONS (8)
  - BIPOLAR DISORDER [None]
  - BLOOD CHOLESTEROL INCREASED [None]
  - DEPRESSION [None]
  - HYPERSENSITIVITY [None]
  - MOOD SWINGS [None]
  - PARKINSON'S DISEASE [None]
  - TREMOR [None]
  - WEIGHT INCREASED [None]
